FAERS Safety Report 23108646 (Version 3)
Quarter: 2024Q2

REPORT INFORMATION
  Report Type: Report from Study
  Country: CA (occurrence: CA)
  Receive Date: 20231026
  Receipt Date: 20240522
  Transmission Date: 20240716
  Serious: Yes (Other)
  Sender: FDA-Public Use
  Company Number: CA-002147023-NVSC2023CA227337

PATIENT
  Age: 81 Year
  Sex: Female
  Weight: 64.7 kg

DRUGS (3)
  1. KISQALI [Suspect]
     Active Substance: RIBOCICLIB
     Indication: Breast cancer metastatic
     Dosage: 600 MG, QD
     Route: 048
     Dates: start: 20231016
  2. KISQALI [Suspect]
     Active Substance: RIBOCICLIB
     Dosage: 200 MG, QD
     Route: 048
  3. KISQALI [Suspect]
     Active Substance: RIBOCICLIB
     Dosage: 400 MG, QD
     Route: 048
     Dates: start: 202310

REACTIONS (6)
  - Electrocardiogram QT prolonged [Unknown]
  - Arrhythmia [Recovered/Resolved]
  - Nausea [Recovering/Resolving]
  - Sluggishness [Recovered/Resolved]
  - Hepatic enzyme increased [Recovered/Resolved]
  - Somnolence [Recovered/Resolved]
